FAERS Safety Report 7370162-5 (Version None)
Quarter: 2011Q1

REPORT INFORMATION
  Report Type: 
  Country: None (occurrence: None)
  Receive Date: 20110323
  Receipt Date: 20100916
  Transmission Date: 20110831
  Serious: No
  Sender: FDA-Public Use
  Company Number: US-ASTRAZENECA-2010SE43644

PATIENT
  Sex: Male
  Weight: 111.1 kg

DRUGS (4)
  1. SEROQUEL XR [Suspect]
     Dosage: CUT IN HALF
     Route: 048
  2. LISINOPRIL [Suspect]
     Route: 048
  3. SERTALLINA [Concomitant]
     Route: 065
  4. SEROQUEL XR [Suspect]
     Route: 048

REACTIONS (6)
  - ERECTILE DYSFUNCTION [None]
  - CONSTIPATION [None]
  - FATIGUE [None]
  - FALL [None]
  - WRONG TECHNIQUE IN DRUG USAGE PROCESS [None]
  - DROOLING [None]
